FAERS Safety Report 5638861-0 (Version None)
Quarter: 2008Q1

REPORT INFORMATION
  Report Type: 
  Country: None (occurrence: None)
  Receive Date: 20080226
  Receipt Date: 20080218
  Transmission Date: 20080703
  Serious: Yes (Other)
  Sender: FDA-Public Use
  Company Number: PHEH2007US13444

PATIENT
  Age: 49 Year
  Sex: Male

DRUGS (7)
  1. ZOMETA [Suspect]
     Indication: METASTASES TO BONE
     Dosage: 4 MG, ONCE MONTHLY
     Route: 042
     Dates: start: 20061222, end: 20070416
  2. DEXAMETHASONE TAB [Concomitant]
     Indication: PREMEDICATION
     Dosage: 4 MG AND 12 MG UNK
     Dates: start: 20070104, end: 20071008
  3. AVASTIN [Concomitant]
     Indication: NON-SMALL CELL LUNG CANCER STAGE IV
     Dosage: UNK, QW3
     Dates: start: 20070104, end: 20070507
  4. AVASTIN [Concomitant]
     Dosage: UNK, QW4
     Dates: start: 20070611, end: 20070709
  5. TAXOTERE [Concomitant]
     Indication: NON-SMALL CELL LUNG CANCER STAGE IV
     Dosage: UNK, QW4
     Dates: start: 20070104, end: 20070507
  6. ALIMTA [Concomitant]
     Indication: NON-SMALL CELL LUNG CANCER STAGE IV
     Dosage: UNK, QW3
     Dates: start: 20070827, end: 20071008
  7. CARBOPLATIN [Concomitant]
     Indication: NON-SMALL CELL LUNG CANCER STAGE IV
     Dosage: UNK, QW3
     Dates: start: 20070104, end: 20070507

REACTIONS (4)
  - ACTINOMYCOSIS [None]
  - IMPAIRED HEALING [None]
  - OSTEONECROSIS [None]
  - PAIN IN JAW [None]
